FAERS Safety Report 17771857 (Version 3)
Quarter: 2020Q2

REPORT INFORMATION
  Report Type: Report from Study
  Country: US (occurrence: US)
  Receive Date: 20200512
  Receipt Date: 20200619
  Transmission Date: 20200714
  Serious: Yes (Death, Hospitalization)
  Sender: FDA-Public Use
  Company Number: US-EXELIXIS-CABO-20029711

PATIENT
  Age: 61 Year
  Sex: Female

DRUGS (1)
  1. CABOMETYX [Suspect]
     Active Substance: CABOZANTINIB S-MALATE
     Indication: RENAL CANCER
     Dosage: 20 MG
     Dates: start: 20200417

REACTIONS (4)
  - Abdominal distension [Unknown]
  - Peripheral swelling [Unknown]
  - Death [Fatal]
  - Blood urine present [Unknown]

NARRATIVE: CASE EVENT DATE: 20200529
